FAERS Safety Report 21302180 (Version 2)
Quarter: 2022Q4

REPORT INFORMATION
  Report Type: Spontaneous
  Country: HN (occurrence: HN)
  Receive Date: 20220907
  Receipt Date: 20221014
  Transmission Date: 20230113
  Serious: No
  Sender: FDA-Public Use
  Company Number: HN-PFIZER INC-PV202200040698

PATIENT
  Age: 12 Year
  Sex: Female

DRUGS (1)
  1. GENOTROPIN [Suspect]
     Active Substance: SOMATROPIN
     Dosage: 1 MG, 1X/DAY

REACTIONS (4)
  - Device information output issue [Unknown]
  - Circumstance or information capable of leading to device use error [Unknown]
  - Device leakage [Unknown]
  - Wrong technique in device usage process [Unknown]
